FAERS Safety Report 7013702-8 (Version None)
Quarter: 2010Q3

REPORT INFORMATION
  Report Type: 
  Country: None (occurrence: None)
  Receive Date: 20100924
  Receipt Date: 20100803
  Transmission Date: 20110219
  Serious: Yes (Hospitalization)
  Sender: FDA-Public Use
  Company Number: PHHO2010US13840

PATIENT
  Sex: Female
  Weight: 17.8 kg

DRUGS (2)
  1. ICL670A ICL+DISTAB [Suspect]
     Indication: IRON OVERLOAD
     Dosage: 500 MG, QD
     Route: 048
     Dates: start: 20100413
  2. PENICILLIN VK [Concomitant]
     Indication: PROPHYLAXIS
     Dosage: 250 MG, BID
     Route: 048
     Dates: start: 20050602, end: 20100802

REACTIONS (6)
  - BACTERAEMIA [None]
  - COUGH [None]
  - DISEASE PROGRESSION [None]
  - PYREXIA [None]
  - UPPER RESPIRATORY TRACT CONGESTION [None]
  - VIRAL INFECTION [None]
